FAERS Safety Report 5378459-5 (Version None)
Quarter: 2007Q2

REPORT INFORMATION
  Report Type: 
  Country: None (occurrence: None)
  Receive Date: 20070530
  Receipt Date: 20070226
  Transmission Date: 20071010
  Serious: No
  Sender: FDA-Public Use
  Company Number: 2007PV030696

PATIENT
  Age: 66 Year
  Sex: Female

DRUGS (6)
  1. BYETTA [Suspect]
     Indication: DIABETES MELLITUS
     Dosage: 10 MCG;BID;SC  5 MCG;BID;SC  10 MCG;BID;SC  5 MCG;BID;SC
     Route: 058
     Dates: start: 20050601, end: 20050101
  2. BYETTA [Suspect]
     Indication: DIABETES MELLITUS
     Dosage: 10 MCG;BID;SC  5 MCG;BID;SC  10 MCG;BID;SC  5 MCG;BID;SC
     Route: 058
     Dates: start: 20050101, end: 20060101
  3. BYETTA [Suspect]
     Indication: DIABETES MELLITUS
     Dosage: 10 MCG;BID;SC  5 MCG;BID;SC  10 MCG;BID;SC  5 MCG;BID;SC
     Route: 058
     Dates: start: 20060101, end: 20070225
  4. BYETTA [Suspect]
     Indication: DIABETES MELLITUS
     Dosage: 10 MCG;BID;SC  5 MCG;BID;SC  10 MCG;BID;SC  5 MCG;BID;SC
     Route: 058
     Dates: start: 20070226
  5. METFORMIN HCL [Concomitant]
  6. GLIPIZIDE [Concomitant]

REACTIONS (6)
  - ARTHRALGIA [None]
  - BLOOD CHOLESTEROL INCREASED [None]
  - BLOOD GLUCOSE INCREASED [None]
  - HYPOGLYCAEMIA [None]
  - LOW DENSITY LIPOPROTEIN [None]
  - WEIGHT DECREASED [None]
